FAERS Safety Report 11997921 (Version 1)
Quarter: 2016Q1

REPORT INFORMATION
  Report Type: Spontaneous
  Country: DE (occurrence: None)
  Receive Date: 20160202
  Receipt Date: 20160202
  Transmission Date: 20160526
  Serious: Yes (Hospitalization)
  Sender: FDA-Public Use
  Company Number: None

PATIENT
  Sex: Male
  Weight: 91 kg

DRUGS (8)
  1. ALLOPURINOL. [Concomitant]
     Active Substance: ALLOPURINOL
  2. DACLATASVIR 60 MG BMS [Suspect]
     Active Substance: DACLATASVIR
     Indication: HEPATITIS C
     Route: 048
     Dates: start: 20150320, end: 20150402
  3. HCT [Concomitant]
     Active Substance: HYDROCHLOROTHIAZIDE
  4. SOFOSBUVIR 400 MG GILEAD [Suspect]
     Active Substance: SOFOSBUVIR
     Indication: HEPATITIS C
     Route: 048
     Dates: start: 20150320, end: 20150402
  5. CANDESARTAN [Concomitant]
     Active Substance: CANDESARTAN
  6. SOFOSBUVIR [Concomitant]
     Active Substance: SOFOSBUVIR
  7. DSS [Concomitant]
     Active Substance: DEXTRAN SULFATE SODIUM SALT
  8. NEBIVOLOL. [Concomitant]
     Active Substance: NEBIVOLOL

REACTIONS (1)
  - Acute kidney injury [None]

NARRATIVE: CASE EVENT DATE: 20150320
